FAERS Safety Report 9656223 (Version 1)
Quarter: 2013Q4

REPORT INFORMATION
  Report Type: Spontaneous
  Country: US (occurrence: None)
  Receive Date: 20131029
  Receipt Date: 20131029
  Transmission Date: 20140711
  Serious: No
  Sender: FDA-Public Use
  Company Number: None

PATIENT
  Age: 61 Year
  Sex: Male

DRUGS (9)
  1. HUMIRA [Suspect]
     Indication: CROHN^S DISEASE
     Route: 058
     Dates: start: 20130826
  2. QUINNIPRIL [Concomitant]
  3. NORVASC [Concomitant]
  4. CATAPRESS [Concomitant]
  5. ULORIC [Concomitant]
  6. SYNTHROID [Concomitant]
  7. FE SO4 [Concomitant]
  8. VITAMIN C [Concomitant]
  9. XANAX [Concomitant]

REACTIONS (4)
  - Burning sensation [None]
  - Skin disorder [None]
  - Skin exfoliation [None]
  - Psoriasis [None]
